FAERS Safety Report 24125268 (Version 1)
Quarter: 2024Q3

REPORT INFORMATION
  Report Type: Spontaneous
  Country: CN (occurrence: CN)
  Receive Date: 20240723
  Receipt Date: 20240723
  Transmission Date: 20241016
  Serious: Yes (Hospitalization, Other)
  Sender: NOVARTIS
  Company Number: CN-002147023-NVSC2024CN148967

PATIENT
  Age: 34 Year
  Sex: Female
  Weight: 62.8 kg

DRUGS (2)
  1. OXCARBAZEPINE [Suspect]
     Active Substance: OXCARBAZEPINE
     Indication: Epilepsy
     Dosage: 0.6 G, BID
     Route: 048
     Dates: start: 20240510, end: 20240717
  2. LEVETIRACETAM [Concomitant]
     Active Substance: LEVETIRACETAM
     Indication: Epilepsy
     Dosage: 0.25 G, QD
     Route: 048
     Dates: start: 20240510, end: 20240717

REACTIONS (5)
  - Hyponatraemia [Not Recovered/Not Resolved]
  - Amenorrhoea [Unknown]
  - Headache [Recovering/Resolving]
  - Hypertension [Unknown]
  - Maternal exposure timing unspecified [Unknown]

NARRATIVE: CASE EVENT DATE: 20240705
